FAERS Safety Report 26217119 (Version 1)
Quarter: 2025Q4

REPORT INFORMATION
  Report Type: Spontaneous
  Country: CN (occurrence: CN)
  Receive Date: 20251231
  Receipt Date: 20251231
  Transmission Date: 20260117
  Serious: Yes (Hospitalization)
  Sender: BAXTER
  Company Number: None

PATIENT
  Age: 54 Year
  Sex: Female
  Weight: 67.5 kg

DRUGS (4)
  1. CYCLOPHOSPHAMIDE [Suspect]
     Active Substance: CYCLOPHOSPHAMIDE
     Indication: Breast cancer female
     Dosage: 1000 MG, QD
     Route: 041
     Dates: start: 20251129, end: 20251129
  2. SODIUM CHLORIDE [Suspect]
     Active Substance: SODIUM CHLORIDE
     Dosage: 50 ML, QD, WITH CYCLOPHOSPHAMIDE
     Route: 041
     Dates: start: 20251129, end: 20251129
  3. SODIUM CHLORIDE [Suspect]
     Active Substance: SODIUM CHLORIDE
     Dosage: 100 ML, QD, WITH EPIRUBICIN HYDROCHLORIDE
     Route: 041
     Dates: start: 20251129, end: 20251129
  4. EPIRUBICIN HYDROCHLORIDE [Suspect]
     Active Substance: EPIRUBICIN HYDROCHLORIDE
     Indication: Breast cancer female
     Dosage: 140 MG, QD
     Route: 041
     Dates: start: 20251129, end: 20251129

REACTIONS (4)
  - White blood cell count decreased [Recovered/Resolved]
  - Asthenia [Recovered/Resolved]
  - Pyrexia [Unknown]
  - Discomfort [Unknown]

NARRATIVE: CASE EVENT DATE: 20251209
